FAERS Safety Report 17294377 (Version 3)
Quarter: 2023Q4

REPORT INFORMATION
  Report Type: Other
  Country: IN (occurrence: IN)
  Receive Date: 20200121
  Receipt Date: 20231218
  Transmission Date: 20240110
  Serious: Yes (Other)
  Sender: FDA-Public Use
  Company Number: IN-002147023-NVSC2019IN002850

PATIENT
  Age: 45 Year
  Sex: Male

DRUGS (2)
  1. RANIBIZUMAB [Suspect]
     Active Substance: RANIBIZUMAB
     Indication: Retinal vein occlusion
     Route: 050
     Dates: start: 20191004
  2. RANIBIZUMAB [Suspect]
     Active Substance: RANIBIZUMAB
     Indication: Cystoid macular oedema

REACTIONS (5)
  - Acanthamoeba infection [Unknown]
  - Retinal vasculitis [Unknown]
  - Endophthalmitis [Not Recovered/Not Resolved]
  - Product contamination [Unknown]
  - Asthenopia [Unknown]

NARRATIVE: CASE EVENT DATE: 20191007
